FAERS Safety Report 13006828 (Version 1)
Quarter: 2016Q4

REPORT INFORMATION
  Report Type: Spontaneous
  Country: DE (occurrence: DE)
  Receive Date: 20161207
  Receipt Date: 20161207
  Transmission Date: 20170207
  Serious: Yes (Other)
  Sender: FDA-Public Use
  Company Number: DE-TEVA-716757GER

PATIENT
  Sex: Female

DRUGS (1)
  1. ACICLOVIR-RATIOPHARM LIPPENHERPESCREME 50 MG/G CREME [Suspect]
     Active Substance: ACYCLOVIR
     Indication: ORAL HERPES
     Dates: start: 2016, end: 2016

REACTIONS (1)
  - Anaphylactic shock [Recovered/Resolved]

NARRATIVE: CASE EVENT DATE: 2016
